FAERS Safety Report 5242724-2 (Version None)
Quarter: 2007Q1

REPORT INFORMATION
  Report Type: 
  Country: None (occurrence: None)
  Receive Date: 20070221
  Receipt Date: 20070216
  Transmission Date: 20070707
  Serious: Yes (Other)
  Sender: FDA-Public Use
  Company Number: JP-GLAXOSMITHKLINE-B0455844A

PATIENT
  Age: 65 Year
  Sex: Female

DRUGS (4)
  1. PAXIL [Suspect]
     Indication: DEPRESSION
     Route: 048
     Dates: start: 20060706, end: 20060929
  2. HALOPERIDOL [Suspect]
     Indication: OBSESSIVE-COMPULSIVE DISORDER
     Dosage: .75G THREE TIMES PER DAY
     Route: 048
     Dates: start: 20050617, end: 20060303
  3. AKINETON [Suspect]
     Indication: PROPHYLAXIS
     Dosage: 1MG THREE TIMES PER DAY
     Route: 048
     Dates: start: 20050617, end: 20060302
  4. NITRAZEPAM [Concomitant]
     Indication: INSOMNIA
     Dosage: 10MG PER DAY
     Route: 048
     Dates: start: 20050617, end: 20060913

REACTIONS (2)
  - DELIRIUM [None]
  - SLEEP WALKING [None]
